FAERS Safety Report 12777561 (Version 1)
Quarter: 2016Q3

REPORT INFORMATION
  Report Type: Spontaneous
  Country: US (occurrence: US)
  Receive Date: 20160924
  Receipt Date: 20160924
  Transmission Date: 20161109
  Serious: No
  Sender: FDA-Public Use
  Company Number: US-TEVA-683494USA

PATIENT
  Sex: Female

DRUGS (1)
  1. CLONAZEPAM. [Suspect]
     Active Substance: CLONAZEPAM
     Indication: NECK PAIN
     Route: 065
     Dates: start: 201607

REACTIONS (5)
  - Withdrawal syndrome [Unknown]
  - Neck pain [Unknown]
  - Drug ineffective for unapproved indication [Unknown]
  - Toothache [Unknown]
  - Pain in jaw [Unknown]

NARRATIVE: CASE EVENT DATE: 201607
